FAERS Safety Report 7789246-2 (Version None)
Quarter: 2011Q3

REPORT INFORMATION
  Report Type: 
  Country: None (occurrence: None)
  Receive Date: 20110930
  Receipt Date: 20110920
  Transmission Date: 20111222
  Serious: Yes (Hospitalization)
  Sender: FDA-Public Use
  Company Number: US-BAYER-2011-091800

PATIENT
  Age: 20 Year
  Sex: Female

DRUGS (6)
  1. YAZ [Suspect]
     Indication: ORAL CONTRACEPTION
     Dosage: UNK
     Dates: start: 20080501, end: 20090101
  2. NEXIUM [Concomitant]
     Indication: GASTROOESOPHAGEAL REFLUX DISEASE
  3. PHENERGAN HCL [Concomitant]
     Dosage: UNK UNK, PRN
  4. PHENAZOPYRIDINE HCL TAB [Concomitant]
     Indication: URINARY TRACT INFECTION
     Dosage: 200 MG, TID
     Route: 048
     Dates: start: 20090205, end: 20090212
  5. PERCOCET [Concomitant]
  6. CIPROFLOXACIN [Concomitant]
     Indication: URINARY TRACT INFECTION
     Dosage: 500 MG, BID
     Route: 048
     Dates: start: 20090205, end: 20090211

REACTIONS (6)
  - DEPRESSION [None]
  - CHOLECYSTITIS ACUTE [None]
  - WEIGHT DECREASED [None]
  - FOOD INTOLERANCE [None]
  - CHOLELITHIASIS [None]
  - CHEST PAIN [None]
